FAERS Safety Report 7884118-7 (Version None)
Quarter: 2011Q4

REPORT INFORMATION
  Report Type: 
  Country: None (occurrence: None)
  Receive Date: 20111102
  Receipt Date: 20111024
  Transmission Date: 20120403
  Serious: Yes (Hospitalization)
  Sender: FDA-Public Use
  Company Number: JP-BRISTOL-MYERS SQUIBB COMPANY-15004328

PATIENT
  Age: 71 Year
  Sex: Male
  Weight: 61 kg

DRUGS (3)
  1. BARACLUDE [Suspect]
     Indication: HEPATITIS B
     Route: 048
     Dates: start: 20070104
  2. DOXAZOSIN MESYLATE [Concomitant]
     Indication: HYPERTENSION
     Dosage: TABS
     Route: 048
  3. BEZAFIBRATE [Concomitant]
     Indication: HYPERLIPIDAEMIA
     Dosage: TABS
     Route: 048

REACTIONS (1)
  - HEPATIC NEOPLASM MALIGNANT [None]
